FAERS Safety Report 6508118-4 (Version None)
Quarter: 2009Q4

REPORT INFORMATION
  Report Type: 
  Country: None (occurrence: None)
  Receive Date: 20091221
  Receipt Date: 20091212
  Transmission Date: 20100525
  Serious: Yes (Hospitalization)
  Sender: FDA-Public Use
  Company Number: US-PFIZER INC-2009309268

PATIENT
  Age: 60 Year
  Sex: Female

DRUGS (3)
  1. AROMASIN [Suspect]
     Indication: BREAST CANCER METASTATIC
     Dosage: UNK
     Dates: start: 20090601
  2. ZOMETA [Concomitant]
     Dosage: ONCE IN A MONTH
     Route: 042
     Dates: start: 20050101, end: 20090401
  3. ZOMETA [Concomitant]
     Dosage: 4 MG, EVERY 3 MONTHS
     Route: 042
     Dates: start: 20090501

REACTIONS (2)
  - ARTHRALGIA [None]
  - CENTRAL NERVOUS SYSTEM LESION [None]
